FAERS Safety Report 9284215 (Version 1)
Quarter: 2013Q2

REPORT INFORMATION
  Report Type: Report from Study
  Country: JP (occurrence: JP)
  Receive Date: 20130510
  Receipt Date: 20130510
  Transmission Date: 20140414
  Serious: Yes (Other)
  Sender: FDA-Public Use
  Company Number: JP-CUBIST PHARMACEUTICALS, INC.-2013CBST000298

PATIENT
  Sex: 0

DRUGS (5)
  1. CUBICIN [Suspect]
     Indication: INFECTIOUS PLEURAL EFFUSION
     Dosage: 6 MG/KG, ONCE A DAY
     Route: 041
     Dates: start: 20121207, end: 20121220
  2. CUBICIN [Suspect]
     Indication: OFF LABEL USE
     Dosage: 7 MG/KG, ONCE A DAY
     Route: 041
     Dates: start: 20121221, end: 20130107
  3. ISCOTIN                            /00030201/ [Concomitant]
     Indication: ATYPICAL MYCOBACTERIAL INFECTION
     Dosage: 300 MG, QD
     Route: 048
     Dates: start: 20121101
  4. EBUTOL                             /00022301/ [Concomitant]
     Indication: ATYPICAL MYCOBACTERIAL INFECTION
     Dosage: 500 MG, QD
     Dates: start: 20121101
  5. RIFAMPICIN [Concomitant]
     Indication: ATYPICAL MYCOBACTERIAL INFECTION
     Dosage: 300 MG, QD
     Route: 048
     Dates: start: 20121101

REACTIONS (2)
  - Pneumonia [Recovered/Resolved]
  - Overdose [Unknown]
